FAERS Safety Report 21534405 (Version 1)
Quarter: 2022Q4

REPORT INFORMATION
  Report Type: Spontaneous
  Country: DE (occurrence: DE)
  Receive Date: 20221101
  Receipt Date: 20221101
  Transmission Date: 20230112
  Serious: Yes (Other)
  Sender: FDA-Public Use
  Company Number: DE-AstraZeneca-2022A304839

PATIENT
  Age: 32 Year
  Sex: Female

DRUGS (4)
  1. TAMOXIFEN [Suspect]
     Active Substance: TAMOXIFEN
     Indication: Product used for unknown indication
     Dosage: FILM-COATED TABLET
     Route: 048
     Dates: start: 201210, end: 201409
  2. GEMCITABINE [Concomitant]
     Active Substance: GEMCITABINE
     Dosage: UNK
     Route: 065
  3. CARBOPLATIN [Concomitant]
     Active Substance: CARBOPLATIN
     Dosage: UNK
     Route: 065
  4. LETROZOLE [Concomitant]
     Active Substance: LETROZOLE
     Dosage: UNK
     Route: 065

REACTIONS (5)
  - Malignant neoplasm of pleura [Unknown]
  - Malignant neoplasm progression [Unknown]
  - Osteoporosis [Unknown]
  - Metastases to lymph nodes [Unknown]
  - Metastases to heart [Unknown]

NARRATIVE: CASE EVENT DATE: 20140801
